FAERS Safety Report 11916287 (Version 1)
Quarter: 2016Q1

REPORT INFORMATION
  Report Type: Spontaneous
  Country: FR (occurrence: FR)
  Receive Date: 20160114
  Receipt Date: 20160114
  Transmission Date: 20160526
  Serious: Yes (Hospitalization)
  Sender: FDA-Public Use
  Company Number: FR-SA-2016SA003917

PATIENT
  Age: 86 Year
  Sex: Female

DRUGS (9)
  1. HEMI DAONIL [Suspect]
     Active Substance: GLYBURIDE
     Indication: DIABETES MELLITUS
     Route: 048
     Dates: end: 20150721
  2. ALLOPURINOL. [Concomitant]
     Active Substance: ALLOPURINOL
     Dosage: ALLOPURINOL 100
     Route: 065
  3. CLOPIDOGREL [Concomitant]
     Active Substance: CLOPIDOGREL BISULFATE
     Dosage: CLOPIDOGREL  75
     Route: 065
  4. LOSARTAN. [Concomitant]
     Active Substance: LOSARTAN
     Dosage: LOSARTAN 100
     Route: 065
  5. JANUVIA [Suspect]
     Active Substance: SITAGLIPTIN PHOSPHATE
     Indication: DIABETES MELLITUS
     Route: 048
     Dates: end: 20150714
  6. ATORVASTATIN [Concomitant]
     Active Substance: ATORVASTATIN
     Dosage: ATORVASTATIN 40
     Route: 065
  7. HAVLANE [Concomitant]
     Active Substance: LOPRAZOLAM
     Route: 065
  8. AZANTAC [Concomitant]
     Active Substance: RANITIDINE HYDROCHLORIDE
     Dosage: AZANTAC 300
     Route: 065
  9. ATIVAN [Concomitant]
     Active Substance: LORAZEPAM
     Dosage: AZTHYMIL 30
     Route: 065

REACTIONS (1)
  - Pemphigoid [Recovered/Resolved]

NARRATIVE: CASE EVENT DATE: 20150623
